FAERS Safety Report 25653154 (Version 1)
Quarter: 2025Q3

REPORT INFORMATION
  Report Type: Spontaneous
  Country: GB (occurrence: GB)
  Receive Date: 20250807
  Receipt Date: 20250807
  Transmission Date: 20251021
  Serious: Yes (Other)
  Sender: ROCHE
  Company Number: GB-ROCHE-10000356437

PATIENT
  Age: 61 Year
  Sex: Female
  Weight: 87 kg

DRUGS (4)
  1. IBANDRONIC ACID [Suspect]
     Active Substance: IBANDRONIC ACID
     Indication: Product used for unknown indication
     Route: 065
     Dates: start: 20250204, end: 20250715
  2. METFORMIN [Concomitant]
     Active Substance: METFORMIN HYDROCHLORIDE
     Dates: start: 20240419
  3. SERTRALINE [Concomitant]
     Active Substance: SERTRALINE HYDROCHLORIDE
     Dates: start: 20250103
  4. LETROZOLE [Concomitant]
     Active Substance: LETROZOLE
     Dates: start: 20250204, end: 20250714

REACTIONS (2)
  - Visual impairment [Unknown]
  - Dizziness [Recovered/Resolved]
